FAERS Safety Report 12732018 (Version 1)
Quarter: 2016Q3

REPORT INFORMATION
  Report Type: Spontaneous
  Country: US (occurrence: US)
  Receive Date: 20160909
  Receipt Date: 20160909
  Transmission Date: 20161109
  Serious: Yes (Other)
  Sender: FDA-Public Use
  Company Number: None

PATIENT
  Age: 71 Year
  Sex: Female
  Weight: 73.8 kg

DRUGS (17)
  1. METFORMIN [Concomitant]
     Active Substance: METFORMIN HYDROCHLORIDE
  2. FORTEO [Concomitant]
     Active Substance: TERIPARATIDE
  3. VITAMIN B COMPLEX [Concomitant]
     Active Substance: CYANOCOBALAMIN\DEXPANTHENOL\NIACINAMIDE\PYRIDOXINE HYDROCHLORIDE\RIBOFLAVIN 5^-PHOSPHATE SODIUM\THIAMINE HYDROCHLORIDE\VITAMIN B COMPLEX
  4. MAGNESIUM [Concomitant]
     Active Substance: MAGNESIUM
  5. CINNAMON. [Concomitant]
     Active Substance: CINNAMON
  6. VITAMIN D [Concomitant]
     Active Substance: CHOLECALCIFEROL
  7. CHIA [Concomitant]
  8. NEXIUM [Concomitant]
     Active Substance: ESOMEPRAZOLE MAGNESIUM
  9. LORATADINE. [Concomitant]
     Active Substance: LORATADINE
  10. COQ10 [Concomitant]
     Active Substance: UBIDECARENONE
  11. FORTEO [Suspect]
     Active Substance: TERIPARATIDE
     Indication: OSTEOPOROSIS
     Dosage: OTHER STRENGTH:MCG;OTHER DOSE:;OTHER FREQUENCY:;OTHER ROUTE:
     Route: 058
     Dates: start: 20160418, end: 20160906
  12. LANTUS [Concomitant]
     Active Substance: INSULIN GLARGINE
  13. PRESERVISION [Concomitant]
     Active Substance: MINERALS\VITAMINS
  14. SINGULAIR [Concomitant]
     Active Substance: MONTELUKAST SODIUM
  15. FORTEO [Suspect]
     Active Substance: TERIPARATIDE
     Indication: SPINAL OPERATION
     Dosage: OTHER STRENGTH:MCG;OTHER DOSE:;OTHER FREQUENCY:;OTHER ROUTE:
     Route: 058
     Dates: start: 20160418, end: 20160906
  16. PREMARIN [Concomitant]
     Active Substance: ESTROGENS, CONJUGATED
  17. LEVOTHYROXINE. [Concomitant]
     Active Substance: LEVOTHYROXINE

REACTIONS (2)
  - Tooth disorder [None]
  - Dental caries [None]

NARRATIVE: CASE EVENT DATE: 20160617
